FAERS Safety Report 7902521-3 (Version None)
Quarter: 2011Q4

REPORT INFORMATION
  Report Type: 
  Country: None (occurrence: None)
  Receive Date: 20111108
  Receipt Date: 20111026
  Transmission Date: 20120403
  Serious: Yes (Hospitalization)
  Sender: FDA-Public Use
  Company Number: US-ELI_LILLY_AND_COMPANY-US201001000145

PATIENT
  Sex: Female

DRUGS (13)
  1. FORTEO [Suspect]
     Dosage: 20 UG, QD
     Route: 065
     Dates: start: 20100104
  2. FORTEO [Suspect]
     Dosage: 20 UG, QD
     Route: 065
  3. VERAPAMIL [Concomitant]
     Dosage: UNK, 2/D
  4. FORTEO [Suspect]
     Dosage: 20 UG, QD
  5. FUROSEMIDE [Concomitant]
     Dosage: 20 MG, AS NEEDED
  6. CITRACAL [Concomitant]
     Dosage: 4 D/F, DAILY (1/D)
  7. BACTRIM [Concomitant]
  8. FORTEO [Suspect]
     Indication: OSTEOPOROSIS
     Dosage: 20 UG, QD
     Route: 065
     Dates: start: 20091021
  9. FORTEO [Suspect]
     Dosage: 20 UG, QD
  10. MULTI-VITAMIN [Concomitant]
     Dosage: 1 D/F, DAILY (1/D)
  11. FORTEO [Suspect]
     Dosage: 20 UG, QD
  12. FORTEO [Suspect]
     Dosage: 20 UG, QD
  13. PRILOSEC [Concomitant]
     Dosage: UNK, DAILY (1/D)

REACTIONS (17)
  - MUSCULOSKELETAL DISCOMFORT [None]
  - NAUSEA [None]
  - MUSCULOSKELETAL STIFFNESS [None]
  - ARTHRALGIA [None]
  - FALL [None]
  - INFLUENZA LIKE ILLNESS [None]
  - MUSCULOSKELETAL PAIN [None]
  - VISUAL IMPAIRMENT [None]
  - MALAISE [None]
  - BACK PAIN [None]
  - BONE PAIN [None]
  - DRY EYE [None]
  - FLATULENCE [None]
  - HEADACHE [None]
  - NECK PAIN [None]
  - PAIN [None]
  - HYPOACUSIS [None]
